FAERS Safety Report 9216391 (Version 2)
Quarter: 2013Q2

REPORT INFORMATION
  Report Type: Spontaneous
  Country: GB (occurrence: GB)
  Receive Date: 20130408
  Receipt Date: 20130411
  Transmission Date: 20140414
  Serious: Yes (Death)
  Sender: FDA-Public Use
  Company Number: PHFR2013GB002062

PATIENT
  Sex: Male
  Weight: 98 kg

DRUGS (3)
  1. CLOZARIL (CLOZAPINE) [Suspect]
     Indication: SCHIZOPHRENIA
     Dosage: 625 MG,
     Route: 048
     Dates: start: 20050923
  2. SODIUM VALPROATE [Concomitant]
     Dosage: 1 G, UNK
     Route: 048
     Dates: start: 201212
  3. ATORVASTATIN [Concomitant]
     Indication: HYPERCHOLESTEROLAEMIA
     Dosage: 10 MG, UNK
     Route: 048

REACTIONS (1)
  - Bronchopneumonia [Fatal]
